FAERS Safety Report 6812339-0 (Version None)
Quarter: 2010Q3

REPORT INFORMATION
  Report Type: 
  Country: None (occurrence: None)
  Receive Date: 20100701
  Receipt Date: 20100614
  Transmission Date: 20110219
  Serious: Yes (Other)
  Sender: FDA-Public Use
  Company Number: PHHY2010GB25407

PATIENT
  Sex: Male

DRUGS (5)
  1. CLOZARIL [Suspect]
     Indication: SCHIZOPHRENIA
     Dosage: 225 MG, UNK
     Dates: start: 20080414
  2. AMISULPRIDE [Concomitant]
     Indication: PSYCHOTIC DISORDER
     Dosage: 200 MG, BID
  3. VALPROATE SODIUM [Concomitant]
     Indication: AFFECTIVE DISORDER
     Dosage: 1400 MG, UNK
  4. NABUMETONE [Concomitant]
     Indication: RHEUMATOID ARTHRITIS
     Dosage: 500 MG, BID
  5. OMEPRAZOLE [Concomitant]
     Indication: DYSPEPSIA
     Dosage: 40 MG, UNK

REACTIONS (2)
  - ARTHRALGIA [None]
  - RHEUMATOID ARTHRITIS [None]
